FAERS Safety Report 4958179-9 (Version None)
Quarter: 2006Q1

REPORT INFORMATION
  Report Type: 
  Country: None (occurrence: None)
  Receive Date: 20060330
  Receipt Date: 20060317
  Transmission Date: 20060701
  Serious: Yes (Other)
  Sender: FDA-Public Use
  Company Number: PHBS2006JP04087

PATIENT
  Age: 50 Year
  Sex: Male

DRUGS (2)
  1. RESCULA [Suspect]
     Indication: GLAUCOMA
     Dosage: 4 DRPS/DAY
     Dates: start: 20051210, end: 20060124
  2. TIMOPTOL-XE [Concomitant]
     Dates: start: 20010203

REACTIONS (5)
  - EYE PAIN [None]
  - KERATITIS [None]
  - LACRIMATION INCREASED [None]
  - ULCERATIVE KERATITIS [None]
  - VISION BLURRED [None]
